FAERS Safety Report 17610396 (Version 3)
Quarter: 2022Q4

REPORT INFORMATION
  Report Type: Spontaneous
  Country: US (occurrence: US)
  Receive Date: 20200401
  Receipt Date: 20221209
  Transmission Date: 20230113
  Serious: No
  Sender: FDA-Public Use
  Company Number: US-PFIZER INC-2020129481

PATIENT
  Age: 77 Year
  Sex: Male
  Weight: 83.91 kg

DRUGS (1)
  1. XELJANZ XR [Suspect]
     Active Substance: TOFACITINIB CITRATE
     Indication: Rheumatoid arthritis
     Dosage: 11 MG, 1X/DAY
     Route: 048

REACTIONS (8)
  - Eye swelling [Unknown]
  - Condition aggravated [Recovering/Resolving]
  - Body height decreased [Unknown]
  - Overweight [Unknown]
  - Ocular discomfort [Unknown]
  - Nasal discomfort [Unknown]
  - Visual impairment [Unknown]
  - COVID-19 [Unknown]

NARRATIVE: CASE EVENT DATE: 20200301
